FAERS Safety Report 6416693-3 (Version None)
Quarter: 2009Q4

REPORT INFORMATION
  Report Type: 
  Country: None (occurrence: None)
  Receive Date: 20091027
  Receipt Date: 20091023
  Transmission Date: 20100525
  Serious: Yes (Death, Hospitalization)
  Sender: FDA-Public Use
  Company Number: SG-ASTRAZENECA-2009SE22304

PATIENT
  Age: 47 Year
  Sex: Male

DRUGS (2)
  1. GEFITINIB [Suspect]
     Indication: NON-SMALL CELL LUNG CANCER
     Route: 048
  2. STEROIDS [Concomitant]
     Indication: VASOGENIC CEREBRAL OEDEMA

REACTIONS (6)
  - APNOEA [None]
  - BRAIN DEATH [None]
  - BRAIN MASS [None]
  - DEPRESSED LEVEL OF CONSCIOUSNESS [None]
  - GENERAL PHYSICAL HEALTH DETERIORATION [None]
  - TUMOUR NECROSIS [None]
